FAERS Safety Report 14530994 (Version 1)
Quarter: 2018Q1

REPORT INFORMATION
  Report Type: Spontaneous
  Country: BE (occurrence: BE)
  Receive Date: 20180214
  Receipt Date: 20180214
  Transmission Date: 20180509
  Serious: Yes (Other)
  Sender: FDA-Public Use
  Company Number: BE-IMPAX LABORATORIES, INC-2018-IPXL-00401

PATIENT
  Age: 42 Year
  Sex: Male

DRUGS (3)
  1. CABERGOLINE. [Suspect]
     Active Substance: CABERGOLINE
     Dosage: 0.5 MG/WEEK
     Route: 065
  2. CABERGOLINE. [Suspect]
     Active Substance: CABERGOLINE
     Dosage: 0.25 MG/WEEK
     Route: 065
  3. CABERGOLINE. [Suspect]
     Active Substance: CABERGOLINE
     Indication: PROLACTIN-PRODUCING PITUITARY TUMOUR
     Dosage: 0.125 MG/WEEK
     Route: 065

REACTIONS (4)
  - Cerebral haemorrhage [Unknown]
  - Ischaemic stroke [Unknown]
  - Subdural haematoma [Unknown]
  - Cerebrospinal fluid leakage [Recovered/Resolved]
